FAERS Safety Report 4901261-2 (Version None)
Quarter: 2006Q1

REPORT INFORMATION
  Report Type: 
  Country: None (occurrence: None)
  Receive Date: 20060206
  Receipt Date: 20060127
  Transmission Date: 20060701
  Serious: Yes (Disabling)
  Sender: FDA-Public Use
  Company Number: PHBS2006IT01703

PATIENT
  Age: 78 Year
  Sex: Female

DRUGS (7)
  1. AREDIA [Suspect]
     Indication: METASTASES TO BONE
     Dosage: 60 MG CYCLIC
     Route: 042
     Dates: start: 20020410, end: 20021025
  2. ZOMETA [Suspect]
     Indication: METASTASES TO BONE
     Dosage: 4 MG CYCLIC
     Route: 042
     Dates: start: 20021122, end: 20040302
  3. MITOMYCIN [Concomitant]
     Dates: start: 20040224, end: 20040902
  4. CAPECITABINE [Concomitant]
     Dates: start: 20040224, end: 20040902
  5. MEGACE [Concomitant]
     Dates: start: 20020409, end: 20040213
  6. TAXOL [Concomitant]
     Dates: start: 20041008, end: 20050224
  7. STEROIDS NOS [Concomitant]
     Dosage: PERIODIC ADMINISTRATION

REACTIONS (3)
  - GINGIVAL BLEEDING [None]
  - GINGIVAL INFECTION [None]
  - OSTEITIS [None]
